FAERS Safety Report 4413216-5 (Version None)
Quarter: 2004Q3

REPORT INFORMATION
  Report Type: 
  Country: None (occurrence: None)
  Receive Date: 20040730
  Receipt Date: 20040730
  Transmission Date: 20050211
  Serious: Yes (Death)
  Sender: FDA-Public Use
  Company Number: None

PATIENT
  Age: 26 Month
  Sex: Male
  Weight: 9.61 kg

DRUGS (4)
  1. CYCLOPHOSPHAMIDE [Suspect]
     Indication: NEUROBLASTOMA
     Dosage: 672 MG QD X 2 IV
     Route: 042
     Dates: start: 20040716, end: 20040718
  2. DOXORUBICIN HCL [Suspect]
     Indication: NEUROBLASTOMA
     Dosage: 8 MG QD X 3 IV
     Route: 042
     Dates: start: 20040716, end: 20040719
  3. VINCRISTINE [Suspect]
     Dosage: 0.3MG QD X 3  IV DRIP
     Route: 041
  4. MESNA [Suspect]
     Dosage: 134 MG QD X 2   IV DRIP
     Route: 041

REACTIONS (4)
  - ACUTE RESPIRATORY DISTRESS SYNDROME [None]
  - MALIGNANT NEOPLASM PROGRESSION [None]
  - METASTATIC NEOPLASM [None]
  - NEUROBLASTOMA [None]
